FAERS Safety Report 9539106 (Version 1)
Quarter: 2013Q3

REPORT INFORMATION
  Report Type: Spontaneous
  Country: US (occurrence: US)
  Receive Date: 20130920
  Receipt Date: 20130920
  Transmission Date: 20140515
  Serious: Yes (Life-Threatening, Other)
  Sender: FDA-Public Use
  Company Number: US-BAYER-2013-113087

PATIENT
  Sex: Female

DRUGS (2)
  1. YASMIN [Suspect]
     Dosage: UNK
     Dates: start: 2007
  2. YAZ [Suspect]
     Dosage: UNK
     Dates: start: 2007

REACTIONS (3)
  - Abortion spontaneous [None]
  - Pregnancy on oral contraceptive [None]
  - Drug ineffective [None]
